FAERS Safety Report 18023369 (Version 4)
Quarter: 2021Q4

REPORT INFORMATION
  Report Type: Spontaneous
  Country: US (occurrence: US)
  Receive Date: 20200715
  Receipt Date: 20211209
  Transmission Date: 20220303
  Serious: Yes (Other)
  Sender: FDA-Public Use
  Company Number: US-GILEAD-2020-0482178

PATIENT
  Sex: Male

DRUGS (3)
  1. VIREAD [Suspect]
     Active Substance: TENOFOVIR DISOPROXIL FUMARATE
     Indication: HIV infection
     Dosage: UNK
     Route: 048
     Dates: start: 2004
  2. TRUVADA [Suspect]
     Active Substance: EMTRICITABINE\TENOFOVIR DISOPROXIL FUMARATE
     Indication: HIV infection
     Dosage: UNK
     Route: 065
     Dates: start: 2005, end: 2019
  3. DESCOVY [Concomitant]
     Active Substance: EMTRICITABINE\TENOFOVIR ALAFENAMIDE FUMARATE

REACTIONS (6)
  - Renal injury [Unknown]
  - Skeletal injury [Unknown]
  - Bone density abnormal [Not Recovered/Not Resolved]
  - Tooth loss [Not Recovered/Not Resolved]
  - Tooth fracture [Not Recovered/Not Resolved]
  - Bone density decreased [Unknown]

NARRATIVE: CASE EVENT DATE: 20190101
